FAERS Safety Report 8375935-8 (Version None)
Quarter: 2012Q2

REPORT INFORMATION
  Report Type: 
  Country: None (occurrence: None)
  Receive Date: 20120522
  Receipt Date: 20120514
  Transmission Date: 20120825
  Serious: Yes (Death, Hospitalization, Other)
  Sender: FDA-Public Use
  Company Number: US-BRISTOL-MYERS SQUIBB COMPANY-16317422

PATIENT
  Age: 63 Year
  Sex: Male
  Weight: 81 kg

DRUGS (32)
  1. VITAMIN B COMPLEX CAP [Concomitant]
  2. TRAVATAN [Concomitant]
     Route: 047
  3. ASPIRIN [Concomitant]
     Dosage: TABS
     Route: 048
  4. VASOTEC [Concomitant]
     Dosage: TABS
     Route: 048
  5. LANTUS [Concomitant]
     Route: 058
  6. PLAVIX [Concomitant]
     Dosage: TABS
     Route: 048
  7. SOOTHE [Concomitant]
     Route: 047
  8. ORENCIA [Suspect]
     Indication: RHEUMATOID ARTHRITIS
     Route: 042
     Dates: start: 20110621, end: 20111205
  9. ANDROGEL [Concomitant]
     Route: 062
  10. XENAZINE [Concomitant]
     Route: 048
  11. IMURAN [Concomitant]
     Route: 048
     Dates: start: 20030101, end: 20110801
  12. CALCIUM CARBONATE [Concomitant]
     Dosage: TABS
     Route: 048
  13. HUMALOG [Concomitant]
     Route: 058
  14. UROXATRAL [Concomitant]
     Dosage: TABS
     Route: 048
  15. AMITIZA [Concomitant]
     Route: 048
  16. TRAMADOL HCL [Concomitant]
     Route: 048
  17. VYTORIN [Concomitant]
     Dosage: TABS
     Route: 048
  18. INSULIN [Concomitant]
  19. PREVACID [Concomitant]
     Dosage: CAPS
     Route: 048
  20. AMLODIPINE BESYLATE [Concomitant]
     Route: 048
  21. LYRICA [Concomitant]
     Dosage: CAPS
     Route: 048
  22. ERGOCALCIFEROL [Concomitant]
     Dosage: CAPS
     Route: 048
  23. NYSTATIN [Concomitant]
     Dosage: 1DF:100,000 UL/ML
  24. VITAMIN D [Concomitant]
     Dosage: TABS
     Route: 048
  25. MULTI-VITAMIN [Concomitant]
     Dosage: TABS
     Route: 048
  26. BENICAR [Concomitant]
     Dosage: TAB
     Route: 048
  27. GLUCOSAMINE [Concomitant]
  28. LACRI-LUBE [Concomitant]
     Route: 047
  29. COSOPT [Concomitant]
     Route: 047
  30. KONSYL [Concomitant]
     Dosage: TABS
     Route: 048
  31. MAXITROL [Concomitant]
     Route: 047
  32. PREDNISONE [Concomitant]
     Route: 048

REACTIONS (2)
  - DEATH [None]
  - LUNG ADENOCARCINOMA [None]
